FAERS Safety Report 11110487 (Version 1)
Quarter: 2015Q2

REPORT INFORMATION
  Report Type: Spontaneous
  Country: GB (occurrence: GB)
  Receive Date: 20150513
  Receipt Date: 20150513
  Transmission Date: 20150821
  Serious: Yes (Other)
  Sender: FDA-Public Use
  Company Number: GB-TEVA-561863ACC

PATIENT
  Age: 69 Year
  Sex: Male

DRUGS (10)
  1. CLARITHROMYCIN. [Interacting]
     Active Substance: CLARITHROMYCIN
     Indication: LOWER RESPIRATORY TRACT INFECTION
     Dosage: 1000 MILLIGRAM DAILY; 500MG BD
     Route: 048
  2. ASPIRIN. [Concomitant]
     Active Substance: ASPIRIN
  3. TIOTROPIUM [Concomitant]
     Active Substance: TIOTROPIUM
  4. RAMIPRIL. [Concomitant]
     Active Substance: RAMIPRIL
  5. PREDNISOLONE. [Concomitant]
     Active Substance: PREDNISOLONE
  6. SALBUTAMOL [Concomitant]
     Active Substance: ALBUTEROL
  7. CALCICHEW D3 [Concomitant]
     Active Substance: CALCIUM\CHOLECALCIFEROL
  8. HYDROXYZINE [Concomitant]
     Active Substance: HYDROXYZINE\HYDROXYZINE HYDROCHLORIDE
  9. SERETIDE [Concomitant]
     Active Substance: FLUTICASONE FUROATE\SALMETEROL XINAFOATE
  10. ATORVASTATIN [Suspect]
     Active Substance: ATORVASTATIN
     Indication: PROPHYLAXIS
     Dosage: 80MG
     Route: 048

REACTIONS (4)
  - Myalgia [Recovered/Resolved]
  - Drug interaction [Unknown]
  - Muscle spasms [Recovering/Resolving]
  - Discomfort [Recovering/Resolving]
